FAERS Safety Report 5597701-9 (Version None)
Quarter: 2008Q1

REPORT INFORMATION
  Report Type: 
  Country: None (occurrence: None)
  Receive Date: 20080121
  Receipt Date: 20080110
  Transmission Date: 20080703
  Serious: Yes (Hospitalization)
  Sender: FDA-Public Use
  Company Number: US-ELI_LILLY_AND_COMPANY-US200801002084

PATIENT
  Sex: Female

DRUGS (17)
  1. HUMATROPE [Suspect]
     Indication: ADRENAL DISORDER
     Dosage: UNK, UNKNOWN
     Dates: start: 20080104, end: 20080101
  2. CALTRATE [Concomitant]
     Dosage: UNK, UNKNOWN
  3. SINGULAIR [Concomitant]
     Dosage: UNK, UNKNOWN
  4. KLONOPIN [Concomitant]
     Dosage: UNK, UNKNOWN
  5. PAXIL [Concomitant]
     Dosage: UNK, UNKNOWN
  6. PHENERGAN HCL [Concomitant]
     Dosage: 25 MG, AS NEEDED
  7. SYNTHROID [Concomitant]
     Dosage: 112 UG, UNKNOWN
  8. VITAMIN D [Concomitant]
     Dosage: 50000 IU, UNKNOWN
  9. ALBUTEROL [Concomitant]
     Dosage: UNK, UNKNOWN
     Route: 055
  10. ASCORBIC ACID [Concomitant]
     Dosage: UNK, UNKNOWN
  11. VITAMIN B-12 [Concomitant]
     Dosage: UNK, 2/D
  12. NEURONTIN [Concomitant]
     Dosage: 300 MG, 3/D
  13. MS CONTIN [Concomitant]
     Dosage: 60 MG, 3/D
  14. ZYRTEC [Concomitant]
     Dosage: UNK, UNKNOWN
  15. CORTEF [Concomitant]
     Dosage: UNK, UNKNOWN
  16. ZANTAC [Concomitant]
     Dosage: 300 MG, UNKNOWN
  17. PRINIVIL [Concomitant]
     Dosage: 2.5 MG, DAILY (1/D)
     Dates: start: 20080104

REACTIONS (7)
  - DEPRESSED LEVEL OF CONSCIOUSNESS [None]
  - DYSARTHRIA [None]
  - DYSKINESIA [None]
  - HEADACHE [None]
  - HYPOTENSION [None]
  - LETHARGY [None]
  - MUSCULOSKELETAL STIFFNESS [None]
